FAERS Safety Report 7219170-5 (Version None)
Quarter: 2011Q1

REPORT INFORMATION
  Report Type: 
  Country: None (occurrence: None)
  Receive Date: 20110111
  Receipt Date: 20101018
  Transmission Date: 20110831
  Serious: Yes (Other)
  Sender: FDA-Public Use
  Company Number: DE-RANBAXY-2010R1-40126

PATIENT
  Age: 54 Year
  Sex: Female

DRUGS (1)
  1. CLINDAMYCIN [Suspect]
     Indication: GINGIVITIS ULCERATIVE
     Dosage: 600 MG, QD
     Route: 048

REACTIONS (2)
  - DYSPHAGIA [None]
  - RASH [None]
